FAERS Safety Report 25985493 (Version 1)
Quarter: 2025Q4

REPORT INFORMATION
  Report Type: Report from Study
  Country: CA (occurrence: CA)
  Receive Date: 20251031
  Receipt Date: 20251031
  Transmission Date: 20260118
  Serious: Yes (Hospitalization, Other)
  Sender: ABBVIE
  Company Number: CA-ABBVIE-6524765

PATIENT
  Sex: Male

DRUGS (1)
  1. RINVOQ [Suspect]
     Active Substance: UPADACITINIB
     Indication: Crohn^s disease
     Route: 048

REACTIONS (7)
  - Gastroenteritis viral [Unknown]
  - Diarrhoea [Unknown]
  - Renal failure [Unknown]
  - Abdominal distension [Unknown]
  - Back pain [Unknown]
  - Hypophagia [Unknown]
  - Frequent bowel movements [Unknown]
